FAERS Safety Report 8799431 (Version 1)
Quarter: 2012Q4

REPORT INFORMATION
  Report Type: 
  Country: US (occurrence: US)
  Receive Date: 20120919
  Receipt Date: 20120919
  Transmission Date: 20130627
  Serious: Yes (Hospitalization, Other)
  Sender: FDA-Public Use
  Company Number: PHEH2012US017963

PATIENT
  Sex: Male

DRUGS (1)
  1. TOBI [Suspect]
     Dosage: 5 ml, BID

REACTIONS (3)
  - Gastric haemorrhage [Unknown]
  - Gastric disorder [Unknown]
  - Eating disorder [Unknown]
